FAERS Safety Report 12137684 (Version 2)
Quarter: 2016Q2

REPORT INFORMATION
  Report Type: Report from Study
  Country: US (occurrence: US)
  Receive Date: 20160302
  Receipt Date: 20160411
  Transmission Date: 20160815
  Serious: Yes (Death, Other)
  Sender: FDA-Public Use
  Company Number: US-GILEAD-2016-0201197

PATIENT
  Age: 75 Year
  Sex: Female
  Weight: 96.5 kg

DRUGS (32)
  1. ANIDULAFUNGIN [Concomitant]
     Active Substance: ANIDULAFUNGIN
  2. LEVOFLOXACIN. [Concomitant]
     Active Substance: LEVOFLOXACIN
  3. METOPROLOL. [Concomitant]
     Active Substance: METOPROLOL
  4. ONDANSETRON [Concomitant]
     Active Substance: ONDANSETRON
  5. PANTOPRAZOLE [Concomitant]
     Active Substance: PANTOPRAZOLE SODIUM
  6. PREDNISONE. [Concomitant]
     Active Substance: PREDNISONE
  7. ACYCLOVIR                          /00587301/ [Concomitant]
     Active Substance: ACYCLOVIR
  8. APIXABAN [Concomitant]
     Active Substance: APIXABAN
  9. CEFEPIME [Concomitant]
     Active Substance: CEFEPIME HYDROCHLORIDE
  10. INSULIN REGULAR                    /01223201/ [Concomitant]
     Active Substance: INSULIN BEEF
  11. LORAZEPAM. [Concomitant]
     Active Substance: LORAZEPAM
  12. METHYLPREDNISOLONE. [Concomitant]
     Active Substance: METHYLPREDNISOLONE
  13. MORPHINE [Concomitant]
     Active Substance: MORPHINE
  14. ACETAMINOPHEN. [Concomitant]
     Active Substance: ACETAMINOPHEN
  15. ALPRAZOLAM. [Concomitant]
     Active Substance: ALPRAZOLAM
  16. DRONEDARONE [Concomitant]
     Active Substance: DRONEDARONE
  17. FUROSEMIDE. [Concomitant]
     Active Substance: FUROSEMIDE
  18. IPRATROPIUM [Concomitant]
     Active Substance: IPRATROPIUM
  19. SILDENAFIL. [Concomitant]
     Active Substance: SILDENAFIL
  20. CITALOPRAM [Concomitant]
     Active Substance: CITALOPRAM HYDROBROMIDE
  21. DILTIAZEM [Concomitant]
     Active Substance: DILTIAZEM
  22. DORIPENEM [Concomitant]
     Active Substance: DORIPENEM
  23. INSULIN DETEMIR [Concomitant]
     Active Substance: INSULIN DETEMIR
  24. METOLAZONE. [Concomitant]
     Active Substance: METOLAZONE
  25. NYSTATIN. [Concomitant]
     Active Substance: NYSTATIN
  26. VANCOMYCIN [Concomitant]
     Active Substance: VANCOMYCIN
  27. BACTRIM DS [Concomitant]
     Active Substance: SULFAMETHOXAZOLE\TRIMETHOPRIM
  28. AMBRISENTAN [Suspect]
     Active Substance: AMBRISENTAN
     Indication: PRODUCT USED FOR UNKNOWN INDICATION
     Dosage: 10 MG, UNK
     Route: 065
     Dates: start: 20140714
  29. DIGOXIN. [Concomitant]
     Active Substance: DIGOXIN
  30. PRAVASTATIN [Concomitant]
     Active Substance: PRAVASTATIN\PRAVASTATIN SODIUM
  31. TRAZODONE [Concomitant]
     Active Substance: TRAZODONE HYDROCHLORIDE
  32. VENELEX [Concomitant]
     Active Substance: BALSAM PERU\CASTOR OIL

REACTIONS (1)
  - Death [Fatal]

NARRATIVE: CASE EVENT DATE: 20151217
